FAERS Safety Report 19895071 (Version 1)
Quarter: 2021Q3

REPORT INFORMATION
  Report Type: Spontaneous
  Country: US (occurrence: US)
  Receive Date: 20210928
  Receipt Date: 20210928
  Transmission Date: 20211014
  Serious: Yes (Other)
  Sender: FDA-Public Use
  Company Number: None

PATIENT
  Age: 28 Year
  Sex: Female

DRUGS (1)
  1. MIRENA [Suspect]
     Active Substance: LEVONORGESTREL
     Dates: start: 20171115, end: 20210927

REACTIONS (6)
  - Libido decreased [None]
  - Dyspareunia [None]
  - Muscle spasms [None]
  - Depression [None]
  - Granuloma skin [None]
  - Mood swings [None]

NARRATIVE: CASE EVENT DATE: 20191116
